FAERS Safety Report 7723228-1 (Version None)
Quarter: 2011Q3

REPORT INFORMATION
  Report Type: 
  Country: None (occurrence: None)
  Receive Date: 20110826
  Receipt Date: 20110817
  Transmission Date: 20111222
  Serious: Yes (Other)
  Sender: FDA-Public Use
  Company Number: GER/UKI/11/0020681

PATIENT
  Age: 76 Year
  Sex: Male

DRUGS (3)
  1. BETA BLOCK [Suspect]
     Indication: PRODUCT USED FOR UNKNOWN INDICATION
  2. FLECAINIDE ACETATE [Concomitant]
  3. FINASTERIDE [Suspect]
     Indication: PRODUCT USED FOR UNKNOWN INDICATION
     Dosage: 5 MG, ORAL
     Route: 048

REACTIONS (2)
  - LOSS OF CONSCIOUSNESS [None]
  - DRUG INTERACTION [None]
